FAERS Safety Report 8567161-4 (Version None)
Quarter: 2012Q3

REPORT INFORMATION
  Report Type: 
  Country: None (occurrence: None)
  Receive Date: 20120803
  Receipt Date: 20110912
  Transmission Date: 20120928
  Serious: No
  Sender: FDA-Public Use
  Company Number: US-ABBOTT-11P-163-0853728-00

PATIENT
  Sex: Male
  Weight: 127.12 kg

DRUGS (11)
  1. METAMUCIL-2 [Concomitant]
     Indication: PRODUCT USED FOR UNKNOWN INDICATION
  2. ASPIRIN [Concomitant]
     Indication: CARDIAC DISORDER
  3. PRAVASTATIN [Concomitant]
     Indication: PRODUCT USED FOR UNKNOWN INDICATION
  4. XALATAN [Concomitant]
     Indication: GLAUCOMA
     Dosage: EYE
  5. ASPIRIN [Concomitant]
     Indication: PROPHYLAXIS
  6. ALLOPURINOL [Concomitant]
     Indication: NEPHROLITHIASIS
  7. PLAVIX [Concomitant]
     Indication: PRODUCT USED FOR UNKNOWN INDICATION
  8. METOPROLOL TARTRATE [Concomitant]
     Indication: CARDIAC DISORDER
  9. NIASPAN [Suspect]
     Indication: ARTERIOSCLEROSIS
     Dates: start: 20110101
  10. LOVAZA [Concomitant]
     Indication: BLOOD CHOLESTEROL INCREASED
  11. ALLOPURINOL [Concomitant]
     Indication: BLOOD URIC ACID INCREASED

REACTIONS (2)
  - FLUSHING [None]
  - PRURITUS [None]
